FAERS Safety Report 20224268 (Version 1)
Quarter: 2021Q4

REPORT INFORMATION
  Report Type: Spontaneous
  Country: US (occurrence: None)
  Receive Date: 20211223
  Receipt Date: 20211223
  Transmission Date: 20220303
  Serious: No
  Sender: FDA-Public Use
  Company Number: None

PATIENT
  Age: 84 Year
  Sex: Male
  Weight: 77 kg

DRUGS (5)
  1. IMATINIB [Suspect]
     Active Substance: IMATINIB
     Indication: Gastrointestinal stromal tumour
     Dosage: FREQUENCY : DAILY;?
     Route: 048
     Dates: start: 20210525
  2. AMBIEN [Concomitant]
     Active Substance: ZOLPIDEM TARTRATE
  3. BACLOFEN [Concomitant]
     Active Substance: BACLOFEN
  4. LOSARTAN [Concomitant]
     Active Substance: LOSARTAN
  5. TYLENOL [Concomitant]
     Active Substance: ACETAMINOPHEN

REACTIONS (1)
  - Yellow skin [None]

NARRATIVE: CASE EVENT DATE: 20211223
